FAERS Safety Report 12166443 (Version 1)
Quarter: 2016Q1

REPORT INFORMATION
  Report Type: Spontaneous
  Country: US (occurrence: US)
  Receive Date: 20160309
  Receipt Date: 20160309
  Transmission Date: 20160526
  Serious: Yes (Other)
  Sender: FDA-Public Use
  Company Number: US-CELGENEUS-USA-2016030750

PATIENT
  Age: 75 Year
  Sex: Male
  Weight: 102.6 kg

DRUGS (17)
  1. REVLIMID [Suspect]
     Active Substance: LENALIDOMIDE
     Indication: PLASMA CELL MYELOMA
     Route: 048
     Dates: start: 20140114
  2. DILACOR XR [Concomitant]
     Active Substance: DILTIAZEM HYDROCHLORIDE
     Indication: HYPERTENSION
     Dosage: 300 MILLIGRAM
     Route: 065
  3. TYLENOL EXTRA STRENGTH [Concomitant]
     Active Substance: ACETAMINOPHEN
     Indication: PAIN
     Dosage: 400 MILLIGRAM
     Route: 065
  4. REVLIMID [Suspect]
     Active Substance: LENALIDOMIDE
     Route: 048
     Dates: start: 201512
  5. ASPIRIN. [Concomitant]
     Active Substance: ASPIRIN
     Indication: CARDIAC DISORDER
     Dosage: 40 MILLIGRAM
     Route: 065
  6. PRILOSEC [Concomitant]
     Active Substance: OMEPRAZOLE MAGNESIUM
     Indication: GASTROOESOPHAGEAL REFLUX DISEASE
     Dosage: 240 MILLIGRAM
     Route: 065
  7. DILACOR XR [Concomitant]
     Active Substance: DILTIAZEM HYDROCHLORIDE
     Indication: CARDIAC DISORDER
  8. FUROSEMIDE. [Concomitant]
     Active Substance: FUROSEMIDE
     Indication: BENIGN PROSTATIC HYPERPLASIA
     Dosage: 40 MILLIGRAM
     Route: 065
  9. CHLORDIAZEPOXIDE-CLINIUM [Concomitant]
     Indication: MUSCLE SPASMS
  10. EPOGEN [Concomitant]
     Active Substance: ERYTHROPOIETIN
     Indication: ANAEMIA
     Dosage: 20,000 UNITS
     Route: 065
  11. AVAPRO [Concomitant]
     Active Substance: IRBESARTAN
     Indication: BENIGN PROSTATIC HYPERPLASIA
     Route: 065
  12. PRAVASTATIN [Concomitant]
     Active Substance: PRAVASTATIN\PRAVASTATIN SODIUM
     Indication: HYPERLIPIDAEMIA
     Route: 065
  13. ASPIRIN. [Concomitant]
     Active Substance: ASPIRIN
     Indication: HYPERTENSION
  14. ACYCLOVIR. [Concomitant]
     Active Substance: ACYCLOVIR
     Indication: ANTIVIRAL PROPHYLAXIS
     Route: 065
  15. REVLIMID [Suspect]
     Active Substance: LENALIDOMIDE
     Route: 048
     Dates: start: 201402
  16. REVLIMID [Suspect]
     Active Substance: LENALIDOMIDE
     Dosage: 20 MILLIGRAM
     Route: 048
     Dates: start: 201501
  17. CHLORDIAZEPOXIDE-CLINIUM [Concomitant]
     Indication: ABDOMINAL PAIN
     Dosage: 5 - 2.5MG
     Route: 065

REACTIONS (1)
  - No therapeutic response [Recovered/Resolved]

NARRATIVE: CASE EVENT DATE: 20160215
